FAERS Safety Report 18406588 (Version 2)
Quarter: 2020Q4

REPORT INFORMATION
  Report Type: Spontaneous
  Country: ES (occurrence: ES)
  Receive Date: 20201021
  Receipt Date: 20201104
  Transmission Date: 20210114
  Serious: Yes (Other)
  Sender: FDA-Public Use
  Company Number: ES-SAMSUNG BIOEPIS-SB-2020-26850

PATIENT
  Age: 26 Year
  Sex: Female

DRUGS (1)
  1. ADALIMUMAB [Suspect]
     Active Substance: ADALIMUMAB
     Indication: HIDRADENITIS
     Route: 058
     Dates: start: 201901, end: 2019

REACTIONS (6)
  - Paradoxical drug reaction [Recovered/Resolved]
  - Therapeutic product effect decreased [Unknown]
  - Paradoxical psoriasis [Recovered/Resolved]
  - Sacroiliitis [Recovered/Resolved]
  - Palmoplantar pustulosis [Recovered/Resolved]
  - Psoriatic arthropathy [Recovered/Resolved]

NARRATIVE: CASE EVENT DATE: 2019
